FAERS Safety Report 13805402 (Version 1)
Quarter: 2017Q3

REPORT INFORMATION
  Report Type: Spontaneous
  Country: JP (occurrence: JP)
  Receive Date: 20170728
  Receipt Date: 20170728
  Transmission Date: 20171127
  Serious: Yes (Death)
  Sender: FDA-Public Use
  Company Number: JP-ACTELION-A-CH2017-157050

PATIENT
  Age: 3 Year
  Sex: Male
  Weight: 6 kg

DRUGS (1)
  1. EPOPROSTENOL ACT [Suspect]
     Active Substance: EPOPROSTENOL
     Indication: PRODUCT USED FOR UNKNOWN INDICATION
     Dosage: 66 NG/KG, PER MIN
     Route: 042
     Dates: end: 20170718

REACTIONS (1)
  - Multiple organ dysfunction syndrome [Fatal]
